FAERS Safety Report 7373078-3 (Version None)
Quarter: 2011Q1

REPORT INFORMATION
  Report Type: 
  Country: None (occurrence: None)
  Receive Date: 20110324
  Receipt Date: 20110318
  Transmission Date: 20110831
  Serious: Yes (Other)
  Sender: FDA-Public Use
  Company Number: BR-PFIZER INC-2011059910

PATIENT
  Age: 70 Year
  Sex: Female

DRUGS (1)
  1. FRONTAL [Suspect]
     Dosage: UNK
     Route: 048

REACTIONS (4)
  - INSOMNIA [None]
  - BACK PAIN [None]
  - OSTEOARTHRITIS [None]
  - HEADACHE [None]
